FAERS Safety Report 4382390-1 (Version None)
Quarter: 2004Q2

REPORT INFORMATION
  Report Type: 
  Country: None (occurrence: None)
  Receive Date: 20040621
  Receipt Date: 20040621
  Transmission Date: 20050107
  Serious: Yes (Disabling)
  Sender: FDA-Public Use
  Company Number: None

PATIENT
  Age: 55 Year
  Sex: Female
  Weight: 63.5036 kg

DRUGS (1)
  1. DEPO-MEDROL [Suspect]
     Indication: BACK PAIN
     Dates: start: 20031010, end: 20031010

REACTIONS (2)
  - ARACHNOIDITIS [None]
  - POST PROCEDURAL COMPLICATION [None]
